FAERS Safety Report 9265111 (Version 3)
Quarter: 2013Q3

REPORT INFORMATION
  Report Type: Spontaneous
  Country: US (occurrence: US)
  Receive Date: 20130501
  Receipt Date: 20130731
  Transmission Date: 20140515
  Serious: Yes (Hospitalization)
  Sender: FDA-Public Use
  Company Number: US-PFIZER INC-2013131389

PATIENT
  Age: 66 Year
  Sex: Male

DRUGS (2)
  1. XALKORI [Suspect]
     Indication: ADENOSQUAMOUS CELL LUNG CANCER
     Dosage: 250 MG, 2X/DAY
     Route: 048
     Dates: start: 20130218, end: 20130331
  2. XALKORI [Suspect]
     Dosage: UNK
     Dates: start: 201304, end: 201306

REACTIONS (4)
  - Pneumonia [Recovered/Resolved with Sequelae]
  - Deep vein thrombosis [Recovered/Resolved with Sequelae]
  - Disease progression [Unknown]
  - Adenosquamous cell lung cancer [Unknown]
